FAERS Safety Report 14625659 (Version 6)
Quarter: 2018Q4

REPORT INFORMATION
  Report Type: Spontaneous
  Country: US (occurrence: US)
  Receive Date: 20180312
  Receipt Date: 20181105
  Transmission Date: 20190204
  Serious: Yes (Other)
  Sender: FDA-Public Use
  Company Number: US-GLAXOSMITHKLINE-US2018GSK040487

PATIENT
  Age: 60 Year
  Sex: Female

DRUGS (9)
  1. FLOLAN [Suspect]
     Active Substance: EPOPROSTENOL SODIUM
     Dosage: 32.5 DF, CO
  2. FLOLAN [Suspect]
     Active Substance: EPOPROSTENOL SODIUM
     Indication: PULMONARY ARTERIAL HYPERTENSION
     Dosage: 32.5 DF, CO
     Route: 042
     Dates: start: 20070111
  3. FLOLAN DILUENT PH 12 [Suspect]
     Active Substance: GLYCINE\MANNITOL\SODIUM CHLORIDE
     Dosage: UNK
  4. COUMADIN [Concomitant]
     Active Substance: WARFARIN SODIUM
  5. FLOLAN DILUENT PH 12 [Suspect]
     Active Substance: GLYCINE\MANNITOL\SODIUM CHLORIDE
     Dosage: UNK
     Route: 042
     Dates: start: 20171228
  6. REVATIO [Concomitant]
     Active Substance: SILDENAFIL CITRATE
  7. FLOLAN [Suspect]
     Active Substance: EPOPROSTENOL SODIUM
     Route: 042
  8. FLOLAN [Suspect]
     Active Substance: EPOPROSTENOL SODIUM
     Dosage: 32.5 DF, CO
  9. FLOLAN DILUENT PH 12 [Suspect]
     Active Substance: GLYCINE\MANNITOL\SODIUM CHLORIDE
     Indication: PULMONARY ARTERIAL HYPERTENSION
     Dosage: UNK
     Route: 042
     Dates: start: 20171228

REACTIONS (14)
  - Nasopharyngitis [Unknown]
  - Condition aggravated [Unknown]
  - Cardiac failure [Unknown]
  - Central venous catheterisation [Unknown]
  - Diabetes mellitus [Unknown]
  - Nasal congestion [Unknown]
  - Joint swelling [Unknown]
  - Gait disturbance [Unknown]
  - Pain in extremity [Unknown]
  - Swelling [Unknown]
  - Peripheral swelling [Unknown]
  - Ill-defined disorder [Unknown]
  - Oedema [Unknown]
  - Sinusitis [Unknown]

NARRATIVE: CASE EVENT DATE: 201802
